FAERS Safety Report 19717630 (Version 1)
Quarter: 2021Q3

REPORT INFORMATION
  Report Type: Report from Study
  Country: US (occurrence: US)
  Receive Date: 20210818
  Receipt Date: 20210818
  Transmission Date: 20211014
  Serious: Yes (Hospitalization, Congenital Anomaly, Other)
  Sender: FDA-Public Use
  Company Number: US-TEVA-2021-US-1940999

PATIENT
  Age: 56 Year
  Sex: Female
  Weight: 101.61 kg

DRUGS (35)
  1. AUSTEDO [Suspect]
     Active Substance: DEUTETRABENAZINE
     Dosage: 36 MILLIGRAM DAILY;
     Route: 048
  2. NSAIDS [Suspect]
     Active Substance: UNSPECIFIED INGREDIENT
     Route: 065
  3. NEURONTIN [Concomitant]
     Active Substance: GABAPENTIN
  4. PRILOSEC [Concomitant]
     Active Substance: OMEPRAZOLE MAGNESIUM
  5. CEFUROXIME AXETIL. [Concomitant]
     Active Substance: CEFUROXIME AXETIL
  6. KLOR?CON [Concomitant]
     Active Substance: POTASSIUM CHLORIDE
  7. LIDODERM [Concomitant]
     Active Substance: LIDOCAINE
  8. HEPARIN SODIUM (PORCINE) [Suspect]
     Active Substance: HEPARIN SODIUM
     Route: 065
  9. ESTROGENS CONJUGATED [Suspect]
     Active Substance: ESTROGENS, CONJUGATED
     Route: 065
  10. BASAGLAR KWIKPEN [Concomitant]
     Active Substance: INSULIN GLARGINE
  11. AMOXICILLIN. [Suspect]
     Active Substance: AMOXICILLIN
     Route: 065
  12. WARFARIN SODIUM. [Suspect]
     Active Substance: WARFARIN SODIUM
     Route: 065
  13. LISINOPRIL. [Concomitant]
     Active Substance: LISINOPRIL
  14. CLINDAMYCIN HCL [Concomitant]
     Active Substance: CLINDAMYCIN HYDROCHLORIDE
  15. AUSTEDO [Suspect]
     Active Substance: DEUTETRABENAZINE
     Indication: TARDIVE DYSKINESIA
     Dosage: 12 MILLIGRAM DAILY;
     Route: 048
  16. AUSTEDO [Suspect]
     Active Substance: DEUTETRABENAZINE
     Dosage: 30 MILLIGRAM DAILY;
     Route: 048
  17. SYNTHROID [Concomitant]
     Active Substance: LEVOTHYROXINE SODIUM
  18. VITAMIN E [Concomitant]
     Active Substance: .ALPHA.-TOCOPHEROL
  19. LOVASTATIN. [Concomitant]
     Active Substance: LOVASTATIN
  20. MULTIVITAMIN [Concomitant]
     Active Substance: VITAMINS
  21. HYDROCODONE?ACETAMINOPHEN [Concomitant]
     Active Substance: ACETAMINOPHEN\HYDROCODONE
  22. AUSTEDO [Suspect]
     Active Substance: DEUTETRABENAZINE
     Dosage: 18 MILLIGRAM DAILY;
     Route: 048
  23. AUSTEDO [Suspect]
     Active Substance: DEUTETRABENAZINE
     Dosage: 24 MILLIGRAM DAILY;
     Route: 048
  24. CALCIUM [Concomitant]
     Active Substance: CALCIUM
  25. VIT C1 [Concomitant]
  26. DDAVP (DEMOPRESSIN ACETATE) [Concomitant]
  27. TRAZODONE HYDROCHLORIDE. [Concomitant]
     Active Substance: TRAZODONE HYDROCHLORIDE
  28. SULFAMETHOXAZOLE W/TRIMETHOPRIM [Suspect]
     Active Substance: SULFAMETHOXAZOLE\TRIMETHOPRIM
     Route: 065
  29. CLAVULANIC ACID [Suspect]
     Active Substance: CLAVULANIC ACID
     Route: 065
  30. GLUCOPHAGE [Concomitant]
     Active Substance: METFORMIN HYDROCHLORIDE
  31. FLONASE [Concomitant]
     Active Substance: FLUTICASONE PROPIONATE
  32. BUPROPION HCL [Concomitant]
     Active Substance: BUPROPION HYDROCHLORIDE
  33. ASPIRIN. [Suspect]
     Active Substance: ASPIRIN
     Route: 065
  34. HYDROCHLOROTHIAZIDE. [Concomitant]
     Active Substance: HYDROCHLOROTHIAZIDE
  35. CYMBALTA [Concomitant]
     Active Substance: DULOXETINE HYDROCHLORIDE

REACTIONS (29)
  - Peripheral swelling [Unknown]
  - Hypothyroidism [Unknown]
  - Musculoskeletal pain [Unknown]
  - Erythema [Unknown]
  - Constipation [Unknown]
  - Staphylococcal infection [Unknown]
  - Varicella [Unknown]
  - Blood cholesterol increased [Unknown]
  - Osteoporosis [Unknown]
  - Ovarian cyst [Unknown]
  - Cellulitis [Unknown]
  - Joint arthroplasty [Unknown]
  - Platelet storage pool deficiency [Unknown]
  - Hyporeflexia [Unknown]
  - Gastrooesophageal reflux disease [Unknown]
  - Respiratory disorder [Unknown]
  - Diabetes mellitus [Unknown]
  - Large intestine polyp [Unknown]
  - Arthritis [Unknown]
  - Diarrhoea [Unknown]
  - Skin discolouration [Unknown]
  - Measles [Unknown]
  - Transfusion [Unknown]
  - Muscular weakness [Unknown]
  - Depression [Unknown]
  - Drug hypersensitivity [Unknown]
  - Haemorrhoids [Unknown]
  - Overweight [Unknown]
  - Sinusitis [Unknown]

NARRATIVE: CASE EVENT DATE: 2014
